FAERS Safety Report 11076069 (Version 2)
Quarter: 2015Q2

REPORT INFORMATION
  Report Type: Spontaneous
  Country: IE (occurrence: IE)
  Receive Date: 20150429
  Receipt Date: 20150512
  Transmission Date: 20150821
  Serious: Yes (Other)
  Sender: FDA-Public Use
  Company Number: IE-GILEAD-2015-0150447

PATIENT
  Age: 68 Year
  Sex: Female

DRUGS (9)
  1. PRAMIPEXOLE                        /01356402/ [Concomitant]
  2. IBANDRONIC ACID                    /01304702/ [Concomitant]
  3. NEORECORMON [Concomitant]
     Active Substance: ERYTHROPOIETIN
  4. BISOPROLOL [Concomitant]
     Active Substance: BISOPROLOL
  5. FRUSEMIDE                          /00032601/ [Concomitant]
     Active Substance: FUROSEMIDE
  6. PREDNISOLONE. [Concomitant]
     Active Substance: PREDNISOLONE
  7. DOXAZOSIN [Concomitant]
     Active Substance: DOXAZOSIN\DOXAZOSIN MESYLATE
  8. RIBAVIRIN. [Suspect]
     Active Substance: RIBAVIRIN
     Indication: HEPATITIS C
     Dosage: 400 MG, BID
     Route: 048
     Dates: start: 20150108, end: 20150407
  9. HARVONI [Suspect]
     Active Substance: LEDIPASVIR\SOFOSBUVIR
     Indication: HEPATITIS C
     Dosage: 90/400
     Route: 048
     Dates: start: 20150108, end: 20150401

REACTIONS (1)
  - Chondrocalcinosis pyrophosphate [Not Recovered/Not Resolved]

NARRATIVE: CASE EVENT DATE: 20150116
